FAERS Safety Report 7963382-X (Version None)
Quarter: 2011Q4

REPORT INFORMATION
  Report Type: 
  Country: None (occurrence: None)
  Receive Date: 20111208
  Receipt Date: 20111124
  Transmission Date: 20120403
  Serious: Yes (Hospitalization, Other)
  Sender: FDA-Public Use
  Company Number: US-RANBAXY-2011RR-50915

PATIENT
  Sex: Female

DRUGS (3)
  1. LEVAQUIN [Suspect]
     Dosage: 500 MG, QD
     Route: 048
     Dates: start: 20090423
  2. LEVAQUIN [Suspect]
     Indication: URINARY TRACT INFECTION
     Dosage: 500 MG, QD
     Route: 048
     Dates: start: 20090417
  3. CIPROFLOXACIN [Suspect]
     Indication: RENAL SURGERY
     Dosage: UNK
     Route: 065
     Dates: start: 20080407

REACTIONS (3)
  - TENDONITIS [None]
  - TENDON RUPTURE [None]
  - ROTATOR CUFF SYNDROME [None]
